FAERS Safety Report 10239223 (Version 1)
Quarter: 2014Q2

REPORT INFORMATION
  Report Type: Spontaneous
  Country: US (occurrence: None)
  Receive Date: 20140613
  Receipt Date: 20140613
  Transmission Date: 20141212
  Serious: No
  Sender: FDA-Public Use
  Company Number: None

PATIENT
  Age: 49 Year
  Sex: Female
  Weight: 59.42 kg

DRUGS (1)
  1. TOVIAZ (FESOTERODINE FUMARATE) 8MG [Suspect]
     Indication: HYPERTONIC BLADDER
     Dosage: 8 MG, 1 PILL, ONCE A DAY, ORAL
     Route: 048
     Dates: start: 20140611, end: 20140613

REACTIONS (2)
  - Dry mouth [None]
  - Drug ineffective [None]
